FAERS Safety Report 7314754-8 (Version None)
Quarter: 2011Q1

REPORT INFORMATION
  Report Type: 
  Country: None (occurrence: None)
  Receive Date: 20110225
  Receipt Date: 20110103
  Transmission Date: 20110831
  Serious: No
  Sender: FDA-Public Use
  Company Number: US-MYLANLABS-2010S1021897

PATIENT
  Age: 19 Year
  Sex: Female
  Weight: 61.24 kg

DRUGS (3)
  1. AMNESTEEM [Suspect]
     Indication: ACNE
     Dates: start: 20100510
  2. IRON [Concomitant]
  3. ORAL CONTRACEPTIVE NOS [Concomitant]

REACTIONS (1)
  - EYELID OEDEMA [None]
